FAERS Safety Report 12110066 (Version 1)
Quarter: 2016Q1

REPORT INFORMATION
  Report Type: Spontaneous
  Country: US (occurrence: US)
  Receive Date: 20160224
  Receipt Date: 20160224
  Transmission Date: 20160526
  Serious: No
  Sender: FDA-Public Use
  Company Number: US-009507513-1602USA006429

PATIENT
  Age: 64 Year
  Sex: Female

DRUGS (1)
  1. EMEND [Suspect]
     Active Substance: APREPITANT
     Dosage: 80 MG (1 EMEND CAPSULE) ONCE DAILY
     Route: 048
     Dates: start: 201402

REACTIONS (1)
  - Pre-existing condition improved [Unknown]

NARRATIVE: CASE EVENT DATE: 201402
